FAERS Safety Report 7586765-9 (Version None)
Quarter: 2011Q2

REPORT INFORMATION
  Report Type: 
  Country: None (occurrence: None)
  Receive Date: 20110603
  Receipt Date: 20110208
  Transmission Date: 20111010
  Serious: Yes (Other)
  Sender: FDA-Public Use
  Company Number: 2011SP005947

PATIENT
  Age: 60 Year
  Sex: Female

DRUGS (15)
  1. RESTARSIS [Concomitant]
  2. LAMICTAL [Concomitant]
  3. RHINOCORT [Concomitant]
  4. ATIVAN [Concomitant]
  5. SALAGEN [Concomitant]
  6. LEVOTHYROXINE SODIUM [Concomitant]
  7. PRILOSEC [Concomitant]
  8. ELMIRON [Concomitant]
  9. TYLENOL W/ CODEINE NO. 3 [Concomitant]
  10. SAPHRIS [Suspect]
     Indication: SCHIZOPHRENIA
     Dosage: 5 MG;BID;SL, 5 MG;QD;SL
     Route: 060
     Dates: start: 20110207
  11. SAPHRIS [Suspect]
     Indication: BIPOLAR I DISORDER
     Dosage: 5 MG;BID;SL, 5 MG;QD;SL
     Route: 060
     Dates: start: 20110207
  12. SAPHRIS [Suspect]
     Indication: SCHIZOPHRENIA
     Dosage: 5 MG;BID;SL, 5 MG;QD;SL
     Route: 060
     Dates: start: 20091103
  13. SAPHRIS [Suspect]
     Indication: BIPOLAR I DISORDER
     Dosage: 5 MG;BID;SL, 5 MG;QD;SL
     Route: 060
     Dates: start: 20091103
  14. PAXIL [Concomitant]
  15. SINGULAIR [Concomitant]

REACTIONS (5)
  - TARDIVE DYSKINESIA [None]
  - JAW DISORDER [None]
  - EXTRAPYRAMIDAL DISORDER [None]
  - INAPPROPRIATE SCHEDULE OF DRUG ADMINISTRATION [None]
  - UNDERDOSE [None]
